FAERS Safety Report 9835229 (Version 4)
Quarter: 2014Q2

REPORT INFORMATION
  Report Type: Spontaneous
  Country: US (occurrence: US)
  Receive Date: 20140122
  Receipt Date: 20140516
  Transmission Date: 20141212
  Serious: Yes (Hospitalization, Other)
  Sender: FDA-Public Use
  Company Number: US-BRISTOL-MYERS SQUIBB COMPANY-19879642

PATIENT
  Age: 65 Year
  Sex: Female
  Weight: 70.75 kg

DRUGS (5)
  1. ELIQUIS [Suspect]
     Indication: CEREBROVASCULAR ACCIDENT PROPHYLAXIS
     Route: 048
     Dates: start: 2013
  2. SOTALOL [Concomitant]
  3. METOPROLOL [Concomitant]
  4. COZAAR [Concomitant]
  5. SYNTHROID [Concomitant]

REACTIONS (5)
  - Arthropathy [Unknown]
  - Spinal disorder [Unknown]
  - Tooth injury [Unknown]
  - Bursitis [Unknown]
  - Sciatica [Unknown]
